FAERS Safety Report 17143596 (Version 3)
Quarter: 2020Q1

REPORT INFORMATION
  Report Type: Spontaneous
  Country: CA (occurrence: CA)
  Receive Date: 20191212
  Receipt Date: 20200306
  Transmission Date: 20200409
  Serious: Yes (Hospitalization, Other)
  Sender: FDA-Public Use
  Company Number: CA-PFIZER INC-2019526123

PATIENT
  Age: 50 Year
  Sex: Female
  Weight: 76.19 kg

DRUGS (22)
  1. PANTOLOC [PANTOPRAZOLE] [Concomitant]
     Active Substance: PANTOPRAZOLE SODIUM
     Dosage: 40 G, 2X/DAY
     Route: 048
     Dates: start: 20181024
  2. TEVA SALBUTAMOL STERINEBS [Concomitant]
     Dosage: 100 UG, UNK (1 TO 2 INHALATIONS 4 TIMES A DAY AS NEEDED)
     Route: 055
  3. CALCIUM [Concomitant]
     Active Substance: CALCIUM
     Dosage: 500 G, 2X/DAY
  4. RIVOTRIL [Concomitant]
     Active Substance: CLONAZEPAM
     Dosage: 0.25 (UNIT UNKNOWN), UNK
     Route: 048
     Dates: start: 20191216
  5. PANTOLOC [PANTOPRAZOLE] [Concomitant]
     Active Substance: PANTOPRAZOLE SODIUM
     Dosage: 80 MG, DAILY (2X 40 MG 2X/DAY)
  6. CHAMPIX [Suspect]
     Active Substance: VARENICLINE TARTRATE
     Dosage: 0.5 (UNIT UNNOWN), UNK
     Route: 048
     Dates: start: 20190923, end: 20191211
  7. ABILIFY [Concomitant]
     Active Substance: ARIPIPRAZOLE
     Indication: DEPRESSION
     Dosage: 2 MG, 1X/DAY (IN THE MORNING)
     Dates: start: 20191212
  8. DILAUDID [Concomitant]
     Active Substance: HYDROMORPHONE HYDROCHLORIDE
     Dosage: 2 MG, 4X/DAY
     Dates: start: 20121212
  9. RIVOTRIL [Concomitant]
     Active Substance: CLONAZEPAM
     Indication: ANXIETY
     Dosage: 0.5 MG, 1X/DAY (AT BEDTIME)
  10. VITAMIN B12 [Concomitant]
     Active Substance: CYANOCOBALAMIN
     Dosage: 1000 UG/ML, MONTHLY
     Route: 058
  11. PAXIL CR [Concomitant]
     Active Substance: PAROXETINE HYDROCHLORIDE
     Indication: DEPRESSION
     Dosage: 40 MG, DAILY (2X 20 MG DAILY)
     Route: 048
     Dates: start: 20181024
  12. EURO K 975 [Concomitant]
     Dosage: 1500 MG, 1X/DAY
  13. LAMICTAL [Concomitant]
     Active Substance: LAMOTRIGINE
     Indication: EPILEPSY
     Dosage: 100 MG, 2X/DAY (BREAKFAST AND BEDTIME)
  14. CHLORURE SODIUM [Concomitant]
     Dosage: 1 G, 2X/DAY (AT BREAKFAST AND DINNER)
  15. VALPROIC ACID. [Concomitant]
     Active Substance: VALPROIC ACID
     Indication: EPILEPSY
     Dosage: 500 MG, DAILY (2X250 MG,  2X/DAY)
     Dates: start: 20180813
  16. FLOVENT [Concomitant]
     Active Substance: FLUTICASONE PROPIONATE
     Dosage: 250 UG, 1X/DAY (1 INHALATION EACH NIGHT)
     Route: 055
  17. CHAMPIX [Suspect]
     Active Substance: VARENICLINE TARTRATE
     Indication: SMOKING CESSATION THERAPY
     Dosage: 1 UNK, 2X/DAY
     Dates: start: 20191031, end: 20191127
  18. D-TABS [Concomitant]
     Active Substance: CHOLECALCIFEROL
     Dosage: 10000 IU, WEEKLY
  19. AVAMYS [Concomitant]
     Active Substance: FLUTICASONE FUROATE
     Dosage: 27.5 UG, 2X/DAY
     Route: 045
  20. PRO CAL [Concomitant]
     Dosage: 500 MG, 2X/DAY
  21. EFUDEX [Concomitant]
     Active Substance: FLUOROURACIL
     Dosage: 5 %, 2X/DAY (MORNING AND NIGHT)
     Route: 061
  22. IMOVANE [Concomitant]
     Active Substance: ZOPICLONE
     Dosage: 7.5 G, AT NIGHT

REACTIONS (4)
  - Drug hypersensitivity [Unknown]
  - Suicide attempt [Recovered/Resolved]
  - Impulsive behaviour [Not Recovered/Not Resolved]
  - Suicidal ideation [Not Recovered/Not Resolved]

NARRATIVE: CASE EVENT DATE: 20191123
